FAERS Safety Report 10010838 (Version 1)
Quarter: 2014Q1

REPORT INFORMATION
  Report Type: Spontaneous
  Country: GB (occurrence: GB)
  Receive Date: 20140314
  Receipt Date: 20140314
  Transmission Date: 20141002
  Serious: Yes (Hospitalization)
  Sender: FDA-Public Use
  Company Number: GB-TEVA-465882ISR

PATIENT
  Age: 60 Year
  Sex: Female
  Weight: 55.4 kg

DRUGS (11)
  1. CISPLATIN [Suspect]
     Indication: LUNG ADENOCARCINOMA
     Route: 042
     Dates: start: 20131203, end: 20131203
  2. CISPLATIN [Suspect]
     Indication: LUNG ADENOCARCINOMA
     Route: 042
     Dates: start: 20131224, end: 20131224
  3. CISPLATIN [Suspect]
     Indication: LUNG ADENOCARCINOMA
     Route: 042
     Dates: start: 20140114, end: 20140114
  4. PEMETREXED DISODIUM [Suspect]
     Indication: LUNG ADENOCARCINOMA
     Route: 042
     Dates: start: 20131203, end: 20131203
  5. PEMETREXED DISODIUM [Suspect]
     Indication: LUNG ADENOCARCINOMA
     Route: 042
     Dates: start: 20140114, end: 20140114
  6. PEMETREXED DISODIUM [Suspect]
     Indication: LUNG ADENOCARCINOMA
     Route: 042
     Dates: start: 20131224, end: 20131224
  7. APREPITANT [Concomitant]
     Route: 048
  8. CYCLIZINE [Concomitant]
     Route: 048
  9. ONDANSETRON [Concomitant]
     Route: 048
  10. DEXAMETHASONE [Concomitant]
     Route: 048
  11. VITAMIN B12 [Concomitant]
     Dosage: PRE CYCLE 1 AND 3
     Route: 030

REACTIONS (6)
  - Rash generalised [Recovered/Resolved]
  - Swelling face [Recovered/Resolved]
  - Local swelling [Recovered/Resolved]
  - Vomiting [Recovered/Resolved]
  - Rash [Unknown]
  - Capillary leak syndrome [Unknown]
